FAERS Safety Report 7399472-2 (Version None)
Quarter: 2011Q2

REPORT INFORMATION
  Report Type: 
  Country: None (occurrence: None)
  Receive Date: 20110407
  Receipt Date: 20110404
  Transmission Date: 20111010
  Serious: Yes (Life-Threatening)
  Sender: FDA-Public Use
  Company Number: PHHY2011US27645

PATIENT
  Sex: Female

DRUGS (1)
  1. FEMARA [Suspect]
     Indication: BREAST CANCER
     Dosage: 2.5 MG, QD
     Route: 048

REACTIONS (7)
  - VITAMIN D DEFICIENCY [None]
  - HYPERTENSIVE HEART DISEASE [None]
  - HYPERCHOLESTEROLAEMIA [None]
  - OSTEOPENIA [None]
  - HYPERTENSION [None]
  - GOITRE [None]
  - SINUSITIS [None]
